FAERS Safety Report 25279964 (Version 1)
Quarter: 2025Q2

REPORT INFORMATION
  Report Type: Spontaneous
  Country: RO (occurrence: RO)
  Receive Date: 20250507
  Receipt Date: 20250507
  Transmission Date: 20250717
  Serious: Yes (Other)
  Sender: BRISTOL-MYERS SQUIBB COMPANY
  Company Number: RO-AMGEN-ROUSP2025083296

PATIENT
  Age: 57 Year
  Sex: Male

DRUGS (15)
  1. LENALIDOMIDE [Suspect]
     Active Substance: LENALIDOMIDE
     Indication: Plasma cell myeloma
     Route: 048
     Dates: start: 202202
  2. LENALIDOMIDE [Suspect]
     Active Substance: LENALIDOMIDE
     Dosage: 25 MILLIGRAM (21 DAYS, 7 DAYS BREAK)
     Route: 048
     Dates: start: 202310, end: 202412
  3. LENALIDOMIDE [Suspect]
     Active Substance: LENALIDOMIDE
     Dosage: 25 MILLIGRAM (21 DAYS, 7 DAYS BREAK)
     Route: 048
     Dates: start: 202502
  4. CARFILZOMIB [Suspect]
     Active Substance: CARFILZOMIB
     Indication: Plasma cell myeloma
     Route: 042
     Dates: start: 202202
  5. CARFILZOMIB [Suspect]
     Active Substance: CARFILZOMIB
     Route: 042
     Dates: start: 202210, end: 202301
  6. CARFILZOMIB [Suspect]
     Active Substance: CARFILZOMIB
     Route: 042
     Dates: start: 202303, end: 202311
  7. CARFILZOMIB [Suspect]
     Active Substance: CARFILZOMIB
     Route: 042
  8. DEXAMETHASONE [Suspect]
     Active Substance: DEXAMETHASONE
     Indication: Plasma cell myeloma
     Route: 042
  9. DEXAMETHASONE [Suspect]
     Active Substance: DEXAMETHASONE
     Route: 042
     Dates: start: 202310, end: 202412
  10. DEXAMETHASONE [Suspect]
     Active Substance: DEXAMETHASONE
     Route: 042
     Dates: start: 202502
  11. ELIQUIS [Concomitant]
     Active Substance: APIXABAN
     Indication: Product used for unknown indication
     Dosage: 2 X 5 MG/DAY
     Dates: start: 202202
  12. CALCIUM CARBONATE\VITAMIN D [Concomitant]
     Active Substance: CALCIUM CARBONATE\VITAMIN D
     Indication: Product used for unknown indication
     Dosage: 3CP/DAY
     Dates: start: 202202
  13. .ALPHA.-LIPOIC ACID [Concomitant]
     Active Substance: .ALPHA.-LIPOIC ACID
     Indication: Product used for unknown indication
     Dosage: 600 MILLIGRAM, QD
     Dates: start: 2023
  14. ENOXAPARIN SODIUM [Concomitant]
     Active Substance: ENOXAPARIN SODIUM
     Indication: Product used for unknown indication
     Dosage: 2X0.6 ML/DAY
     Route: 058
  15. ENTECAVIR [Concomitant]
     Active Substance: ENTECAVIR
     Indication: Product used for unknown indication

REACTIONS (5)
  - Loss of consciousness [Recovered/Resolved]
  - Neuropathy peripheral [Recovered/Resolved]
  - Cataract [Unknown]
  - COVID-19 [Recovered/Resolved]
  - Herpes zoster [Recovered/Resolved]

NARRATIVE: CASE EVENT DATE: 20220901
